FAERS Safety Report 5691522-4 (Version None)
Quarter: 2008Q2

REPORT INFORMATION
  Report Type: 
  Country: None (occurrence: None)
  Receive Date: 20080402
  Receipt Date: 20080326
  Transmission Date: 20081010
  Serious: Yes (Hospitalization)
  Sender: FDA-Public Use
  Company Number: PHHY2008JP00994

PATIENT
  Age: 73 Year
  Sex: Female

DRUGS (10)
  1. COMTAN [Suspect]
     Indication: PARKINSON'S DISEASE
     Dosage: 300 MG/DAY
     Route: 050
     Dates: start: 20071128, end: 20080109
  2. PLETAL [Concomitant]
     Dosage: 100 MG
     Route: 050
  3. POLARAMINE [Concomitant]
     Route: 050
  4. CARBIDOPA AND LEVODOPA [Concomitant]
     Route: 050
  5. LAC B [Concomitant]
     Route: 050
  6. SELBEX [Concomitant]
     Route: 050
  7. PANTOSIN [Concomitant]
     Route: 050
  8. CARBIDOPA AND LEVODOPA [Suspect]
     Dosage: 500 MG/DAY
     Route: 050
     Dates: start: 20030126
  9. NAUZELIN [Concomitant]
     Dosage: 2 G
     Route: 050
  10. TPN [Concomitant]
     Dosage: 1000 MG
     Route: 050

REACTIONS (2)
  - CONSTIPATION [None]
  - VOMITING [None]
